FAERS Safety Report 22173013 (Version 1)
Quarter: 2023Q2

REPORT INFORMATION
  Report Type: Spontaneous
  Country: US (occurrence: None)
  Receive Date: 20230403
  Receipt Date: 20230403
  Transmission Date: 20230722
  Serious: Yes (Death)
  Sender: FDA-Public Use
  Company Number: None

PATIENT
  Age: 77 Year
  Sex: Female

DRUGS (1)
  1. TEMOZOLOMIDE [Suspect]
     Active Substance: TEMOZOLOMIDE
     Indication: Neoplasm malignant
     Dosage: FREQUENCY : AT BEDTIME;?
     Route: 048
     Dates: start: 20230126, end: 20230314

REACTIONS (2)
  - Brain neoplasm malignant [None]
  - Malignant neoplasm progression [None]

NARRATIVE: CASE EVENT DATE: 20230315
